FAERS Safety Report 18629948 (Version 2)
Quarter: 2020Q4

REPORT INFORMATION
  Report Type: Spontaneous
  Country: US (occurrence: US)
  Receive Date: 20201217
  Receipt Date: 20201221
  Transmission Date: 20210114
  Serious: No
  Sender: FDA-Public Use
  Company Number: US-PFIZER INC-2020498227

PATIENT
  Sex: Female

DRUGS (2)
  1. CHANTIX [Suspect]
     Active Substance: VARENICLINE TARTRATE
     Dosage: 0.5 MG (0.5 ONCE OR TWICE A DAY)
     Dates: start: 202012
  2. CHANTIX [Suspect]
     Active Substance: VARENICLINE TARTRATE
     Dosage: 1 MG, 2X/DAY (GOT TO 1 MG TABLETS AND ON SECOND DAY)
     Dates: start: 202012

REACTIONS (11)
  - Nausea [Unknown]
  - Abdominal discomfort [Unknown]
  - Gastrointestinal disorder [Unknown]
  - Abnormal dreams [Unknown]
  - Drug intolerance [Unknown]
  - Retching [Unknown]
  - Sleep disorder [Unknown]
  - Product colour issue [Unknown]
  - Asthenia [Unknown]
  - Illness [Unknown]
  - Pain [Unknown]

NARRATIVE: CASE EVENT DATE: 202012
